FAERS Safety Report 23964869 (Version 5)
Quarter: 2024Q3

REPORT INFORMATION
  Report Type: Spontaneous
  Country: US (occurrence: US)
  Receive Date: 20240612
  Receipt Date: 20240710
  Transmission Date: 20241017
  Serious: Yes (Hospitalization)
  Sender: ROCHE
  Company Number: US-ROCHE-3579551

PATIENT
  Age: 63 Year
  Sex: Male

DRUGS (6)
  1. ERIVEDGE [Suspect]
     Active Substance: VISMODEGIB
     Indication: Basal cell carcinoma
     Dosage: ONGOING- YES
     Route: 048
     Dates: start: 20240312
  2. METFORMIN [Concomitant]
     Active Substance: METFORMIN HYDROCHLORIDE
  3. LOSARTAN [Concomitant]
     Active Substance: LOSARTAN
  4. ATORVASTATIN [Concomitant]
     Active Substance: ATORVASTATIN
  5. ATENOLOL [Concomitant]
     Active Substance: ATENOLOL
  6. PANADOL [Concomitant]
     Active Substance: ACETAMINOPHEN

REACTIONS (5)
  - Hyperglycaemia [Unknown]
  - Dizziness [Unknown]
  - Dysarthria [Unknown]
  - Pain [Unknown]
  - Blindness [Unknown]

NARRATIVE: CASE EVENT DATE: 20240508
